FAERS Safety Report 24954778 (Version 1)
Quarter: 2025Q1

REPORT INFORMATION
  Report Type: Spontaneous
  Country: US (occurrence: US)
  Receive Date: 20250211
  Receipt Date: 20250211
  Transmission Date: 20250409
  Serious: Yes (Hospitalization, Other)
  Sender: HIKMA
  Company Number: US-HIKMA PHARMACEUTICALS USA INC.-US-H14001-25-01132

PATIENT
  Age: 17 Year
  Sex: Male
  Weight: 59.55 kg

DRUGS (15)
  1. CYCLOPHOSPHAMIDE [Suspect]
     Active Substance: CYCLOPHOSPHAMIDE
     Indication: Acute lymphocytic leukaemia
     Route: 042
  2. DOXORUBICIN [Suspect]
     Active Substance: DOXORUBICIN
     Indication: Acute lymphocytic leukaemia
     Route: 042
  3. METHOTREXATE [Suspect]
     Active Substance: METHOTREXATE
     Indication: Acute lymphocytic leukaemia
     Route: 037
  4. RUXOLITINIB [Suspect]
     Active Substance: RUXOLITINIB
     Indication: Acute lymphocytic leukaemia
     Dosage: 80 MILLIGRAM, BID
     Route: 048
     Dates: start: 20190826, end: 20190908
  5. RUXOLITINIB [Suspect]
     Active Substance: RUXOLITINIB
     Dosage: 80 MILLIGRAM, BID
     Route: 048
     Dates: start: 20190923, end: 20191006
  6. RUXOLITINIB [Suspect]
     Active Substance: RUXOLITINIB
     Dosage: 80 MILLIGRAM, BID
     Route: 048
     Dates: start: 20191029, end: 20191111
  7. RUXOLITINIB [Suspect]
     Active Substance: RUXOLITINIB
     Dosage: 80 MILLIGRAM, BID
     Route: 048
     Dates: start: 20191210, end: 20191224
  8. RUXOLITINIB [Suspect]
     Active Substance: RUXOLITINIB
     Dosage: 80 MILLIGRAM, BID
     Route: 048
     Dates: start: 20200114, end: 20200128
  9. RUXOLITINIB [Suspect]
     Active Substance: RUXOLITINIB
     Dosage: 80 MILLIGRAM, BID
     Route: 048
     Dates: start: 20200224, end: 20200308
  10. AMOXICILLIN [Concomitant]
     Active Substance: AMOXICILLIN
     Indication: Product used for unknown indication
     Route: 065
     Dates: start: 20191209, end: 20191219
  11. BACTRIM [Concomitant]
     Active Substance: SULFAMETHOXAZOLE\TRIMETHOPRIM
     Indication: Product used for unknown indication
     Route: 065
     Dates: start: 20190812
  12. CLINDAMYCIN [Concomitant]
     Active Substance: CLINDAMYCIN
     Indication: Product used for unknown indication
     Route: 065
     Dates: start: 20200202, end: 20200206
  13. FLOXIN OTIC [Concomitant]
     Active Substance: OFLOXACIN
     Indication: Product used for unknown indication
     Route: 065
     Dates: start: 20191209, end: 20191223
  14. HYDROXYZINE HYDROCHLORIDE [Concomitant]
     Active Substance: HYDROXYZINE HYDROCHLORIDE
     Indication: Product used for unknown indication
     Route: 065
     Dates: start: 20191021
  15. ONDANSETRON [Concomitant]
     Active Substance: ONDANSETRON
     Indication: Product used for unknown indication
     Route: 065
     Dates: start: 20190812

REACTIONS (18)
  - Mucosal inflammation [Unknown]
  - Stomatitis [Recovered/Resolved]
  - Pain in extremity [Unknown]
  - Tendon pain [Unknown]
  - Pain [Unknown]
  - Oropharyngeal pain [Unknown]
  - Atelectasis [Unknown]
  - Hepatic steatosis [Unknown]
  - Sinusitis [Unknown]
  - Nasal septum deviation [Unknown]
  - Neutropenia [Unknown]
  - Pneumonia [Recovered/Resolved]
  - Nausea [Unknown]
  - Unevaluable event [Unknown]
  - Vomiting [Unknown]
  - Pyrexia [Recovered/Resolved]
  - Candida infection [Unknown]
  - Rash [Unknown]

NARRATIVE: CASE EVENT DATE: 20190201
